FAERS Safety Report 8681621 (Version 2)
Quarter: 2012Q4

REPORT INFORMATION
  Report Type: Report from Study
  Country: JP (occurrence: JP)
  Receive Date: 20120725
  Receipt Date: 20121120
  Transmission Date: 20130627
  Serious: Yes (Other)
  Sender: FDA-Public Use
  Company Number: JP-UCBSA-062026

PATIENT
  Age: 73 Year
  Sex: Male
  Weight: 60.3 kg

DRUGS (2)
  1. E KEPPRA [Suspect]
     Indication: SIMPLE PARTIAL SEIZURES
     Route: 048
     Dates: start: 20120307, end: 20120308
  2. SODIUM VALPROATE [Concomitant]
     Indication: SIMPLE PARTIAL SEIZURES
     Dosage: DAILY DOSE: 800 MG
     Route: 048

REACTIONS (1)
  - Pneumonia aspiration [Recovered/Resolved]
